FAERS Safety Report 11785319 (Version 1)
Quarter: 2015Q4

REPORT INFORMATION
  Report Type: Spontaneous
  Country: FR (occurrence: FR)
  Receive Date: 20151130
  Receipt Date: 20151130
  Transmission Date: 20160305
  Serious: Yes (Other)
  Sender: FDA-Public Use
  Company Number: FR-ASTELLAS-2015US044468

PATIENT
  Sex: Male

DRUGS (1)
  1. ADVAGRAF [Suspect]
     Active Substance: TACROLIMUS
     Indication: RENAL TRANSPLANT
     Dosage: 3.0 MG, ONCE DAILY
     Route: 065
     Dates: start: 20130223

REACTIONS (3)
  - Lipids increased [Unknown]
  - Diabetes mellitus [Unknown]
  - Tremor [Unknown]
